FAERS Safety Report 8076857-2 (Version None)
Quarter: 2012Q1

REPORT INFORMATION
  Report Type: 
  Country: None (occurrence: None)
  Receive Date: 20120127
  Receipt Date: 20120118
  Transmission Date: 20120608
  Serious: Yes (Hospitalization)
  Sender: FDA-Public Use
  Company Number: FR-MERCK-1201USA02799

PATIENT
  Age: 31 Year
  Sex: Male

DRUGS (5)
  1. PLAVIX [Concomitant]
     Route: 065
     Dates: start: 20040101
  2. ZOCOR [Suspect]
     Route: 048
     Dates: start: 20040101, end: 20111211
  3. ASPIRIN [Concomitant]
     Route: 065
     Dates: start: 20040101
  4. ISOPTIN [Concomitant]
     Route: 048
     Dates: start: 20040101
  5. RAMIPRIL [Concomitant]
     Route: 065
     Dates: start: 20040101

REACTIONS (2)
  - RENAL FAILURE ACUTE [None]
  - RHABDOMYOLYSIS [None]
